FAERS Safety Report 7274966-9 (Version None)
Quarter: 2010Q4

REPORT INFORMATION
  Report Type: 
  Country: None (occurrence: None)
  Receive Date: 20101206
  Receipt Date: 20100830
  Transmission Date: 20110411
  Serious: No
  Sender: FDA-Public Use
  Company Number: 2010SP046791

PATIENT
  Age: 47 Year
  Sex: Male

DRUGS (4)
  1. SAPHRIS [Suspect]
     Indication: SCHIZOPHRENIA
     Dosage: 5 MG;BID;SL
     Route: 060
     Dates: start: 20100827, end: 20100828
  2. EFFEXOR XR [Concomitant]
  3. SYNTHROID [Concomitant]
  4. ZETIA [Concomitant]

REACTIONS (1)
  - BLOOD PRESSURE INCREASED [None]
